FAERS Safety Report 21757839 (Version 1)
Quarter: 2022Q4

REPORT INFORMATION
  Report Type: Other
  Country: US (occurrence: None)
  Receive Date: 20221221
  Receipt Date: 20221221
  Transmission Date: 20230113
  Serious: Yes (Hospitalization)
  Sender: FDA-Public Use
  Company Number: US-ROCHE-3245436

PATIENT
  Age: 51 Year
  Sex: Female

DRUGS (1)
  1. OCREVUS [Suspect]
     Active Substance: OCRELIZUMAB
     Indication: Relapsing-remitting multiple sclerosis
     Dosage: MOST RECENT INFUSION: 20/JUN/2022
     Route: 065
     Dates: end: 20220620

REACTIONS (3)
  - Influenza [Recovered/Resolved]
  - Eye disorder [Unknown]
  - Stress [Unknown]
